FAERS Safety Report 5326269-7 (Version None)
Quarter: 2007Q2

REPORT INFORMATION
  Report Type: 
  Country: None (occurrence: None)
  Receive Date: 20070514
  Receipt Date: 20070514
  Transmission Date: 20071010
  Serious: No
  Sender: FDA-Public Use
  Company Number: None

PATIENT
  Sex: Female

DRUGS (15)
  1. REVLIMID [Suspect]
     Indication: MULTIPLE MYELOMA
     Dosage: 10MG DAILY PO
     Route: 048
  2. VELCADE [Concomitant]
  3. ANZEMET [Concomitant]
  4. DEXAMETHASONE 0.5MG TAB [Concomitant]
  5. K-TAB [Concomitant]
  6. TEMAZEPAM [Concomitant]
  7. PROCRIT [Concomitant]
  8. METOPROLOL TARTRATE [Concomitant]
  9. WARFARIN [Concomitant]
  10. .. [Concomitant]
  11. FUROSEMIDE [Concomitant]
  12. LOVASTATIN [Concomitant]
  13. LEVOTHROID [Concomitant]
  14. ALLOPURINOL [Concomitant]
  15. ENDOCET [Concomitant]

REACTIONS (2)
  - CONDITION AGGRAVATED [None]
  - NEUROPATHY PERIPHERAL [None]
